FAERS Safety Report 4989979-7 (Version None)
Quarter: 2006Q2

REPORT INFORMATION
  Report Type: 
  Country: None (occurrence: None)
  Receive Date: 20060428
  Receipt Date: 20060411
  Transmission Date: 20061013
  Serious: Yes (Other)
  Sender: FDA-Public Use
  Company Number: DE200604001837

PATIENT
  Age: 35 Year
  Sex: Male

DRUGS (2)
  1. CYMBALTA [Suspect]
     Indication: DEPRESSION
     Dosage: 120 MG, DAILY (1/D), ORAL
     Route: 048
     Dates: start: 20051201
  2. MIRTAZAPINE [Concomitant]

REACTIONS (1)
  - BLOOD PRESSURE INCREASED [None]
